FAERS Safety Report 5925688-5 (Version None)
Quarter: 2008Q4

REPORT INFORMATION
  Report Type: 
  Country: None (occurrence: None)
  Receive Date: 20081016
  Receipt Date: 20080929
  Transmission Date: 20090506
  Serious: Yes (Other)
  Sender: FDA-Public Use
  Company Number: 8037718

PATIENT
  Age: 20 Year
  Sex: Female

DRUGS (2)
  1. PREDNISOLONE [Suspect]
     Indication: DEMYELINATION
     Dosage: 1000 MG /D IV
     Route: 042
  2. PREDNISOLONE [Suspect]
     Indication: DEMYELINATION
     Dosage: PO
     Route: 048

REACTIONS (8)
  - ACUTE GENERALISED EXANTHEMATOUS PUSTULOSIS [None]
  - CONDITION AGGRAVATED [None]
  - GRANULOCYTOSIS [None]
  - HYPOAESTHESIA [None]
  - MULTIPLE SCLEROSIS [None]
  - OPTIC NEURITIS [None]
  - PYREXIA [None]
  - VISUAL ACUITY REDUCED [None]
